FAERS Safety Report 13792676 (Version 6)
Quarter: 2024Q2

REPORT INFORMATION
  Report Type: Spontaneous
  Country: BR (occurrence: BR)
  Receive Date: 20170726
  Receipt Date: 20240520
  Transmission Date: 20240717
  Serious: Yes (Death, Hospitalization, Other)
  Sender: FDA-Public Use
  Company Number: BR-PFIZER INC-2016249188

PATIENT
  Age: 53 Year
  Sex: Male

DRUGS (2)
  1. SUTENT [Suspect]
     Active Substance: SUNITINIB MALATE
     Indication: Metastasis
     Dosage: 50 MG, CYCLIC (TAKES 4 WEEKS AND REST 2 WEEKS)
     Dates: start: 20160426, end: 201705
  2. PHENYTOIN [Concomitant]
     Active Substance: PHENYTOIN
     Dosage: UNK
     Dates: start: 2015

REACTIONS (28)
  - Neoplasm progression [Fatal]
  - Thrombosis [Recovered/Resolved]
  - Haemorrhage [Recovered/Resolved]
  - Coma [Unknown]
  - Multiple injuries [Not Recovered/Not Resolved]
  - Unresponsive to stimuli [Not Recovered/Not Resolved]
  - Thrombocytopenia [Unknown]
  - Blood cholesterol increased [Recovered/Resolved]
  - Decreased appetite [Not Recovered/Not Resolved]
  - Skin exfoliation [Not Recovered/Not Resolved]
  - Amnesia [Not Recovered/Not Resolved]
  - Asthenia [Not Recovered/Not Resolved]
  - Nervousness [Not Recovered/Not Resolved]
  - Insomnia [Not Recovered/Not Resolved]
  - Pain [Not Recovered/Not Resolved]
  - Nail infection [Not Recovered/Not Resolved]
  - Skin odour abnormal [Not Recovered/Not Resolved]
  - Crying [Not Recovered/Not Resolved]
  - Yellow skin [Not Recovered/Not Resolved]
  - Bedridden [Not Recovered/Not Resolved]
  - Dry skin [Not Recovered/Not Resolved]
  - Mobility decreased [Not Recovered/Not Resolved]
  - Eye disorder [Not Recovered/Not Resolved]
  - Cough [Unknown]
  - Haematuria [Unknown]
  - Dizziness [Unknown]
  - Hepatic enzyme abnormal [Unknown]
  - Hypersensitivity [Unknown]

NARRATIVE: CASE EVENT DATE: 20160101
